FAERS Safety Report 5911713-4 (Version None)
Quarter: 2008Q4

REPORT INFORMATION
  Report Type: 
  Country: None (occurrence: None)
  Receive Date: 20081003
  Receipt Date: 20080918
  Transmission Date: 20090506
  Serious: Yes (Hospitalization)
  Sender: FDA-Public Use
  Company Number: 2008S1017094

PATIENT
  Age: 78 Year
  Sex: Male

DRUGS (25)
  1. FUROSEMIDE [Suspect]
     Indication: RENAL FAILURE
     Dates: start: 20080810, end: 20080813
  2. ALLOPURINOL [Concomitant]
  3. ASPIRIN [Concomitant]
  4. ATENOLOL [Concomitant]
  5. AUGMENTIN '125' [Concomitant]
  6. BUMETANIDE [Concomitant]
  7. CALAMINE [Concomitant]
  8. CALCIUM GLUCONATE [Concomitant]
  9. CALCIUM RESONIUM [Concomitant]
  10. CANDESARTAN [Concomitant]
  11. CHLORPHENIRAMINE MALEATE [Concomitant]
  12. CLARITHROMYCIN [Concomitant]
  13. CLOPIDOGREL [Concomitant]
  14. DIAZEPAM [Concomitant]
  15. DIGOXIN [Concomitant]
  16. E45 ITCH RELIEF [Concomitant]
  17. ENOXAPARIN SODIUM [Concomitant]
  18. NITROGLYCERIN [Concomitant]
  19. LEVOTHYROXINE SODIUM [Concomitant]
  20. LORAZEPAM [Concomitant]
  21. METOCLOPRAMIDE [Concomitant]
  22. OMEPRAZOLE [Concomitant]
  23. ACETAMINOPHEN [Concomitant]
  24. PREDNISOLONE [Concomitant]
  25. RAMIPRIL [Concomitant]

REACTIONS (5)
  - BLISTER [None]
  - CONFUSIONAL STATE [None]
  - ERYTHEMA MULTIFORME [None]
  - PRURITUS [None]
  - RASH [None]
